FAERS Safety Report 5231721-9 (Version None)
Quarter: 2007Q1

REPORT INFORMATION
  Report Type: 
  Country: None (occurrence: None)
  Receive Date: 20070206
  Receipt Date: 20070125
  Transmission Date: 20070707
  Serious: Yes (Other)
  Sender: FDA-Public Use
  Company Number: NO-PFIZER INC-2006148448

PATIENT
  Age: 79 Year
  Sex: Female

DRUGS (6)
  1. ZARONTIN [Suspect]
     Indication: EPILEPSY
  2. ZARONDAN [Concomitant]
     Dates: start: 19650101, end: 20050101
  3. COAPROVEL [Concomitant]
     Indication: HYPERTENSION
  4. SELO-ZOK [Concomitant]
     Indication: HYPERTENSION
  5. SIMVASTATIN [Concomitant]
  6. GLUCOPHAGE [Concomitant]
     Indication: DIABETES MELLITUS NON-INSULIN-DEPENDENT

REACTIONS (2)
  - DRUG INEFFECTIVE [None]
  - GRAND MAL CONVULSION [None]
